FAERS Safety Report 24032130 (Version 3)
Quarter: 2024Q3

REPORT INFORMATION
  Report Type: Spontaneous
  Country: US (occurrence: None)
  Receive Date: 20240630
  Receipt Date: 20240827
  Transmission Date: 20241016
  Serious: No
  Sender: ASTRAZENECA
  Company Number: 2024A141665

PATIENT
  Age: 69 Year
  Sex: Male

DRUGS (2)
  1. BYDUREON BCISE [Suspect]
     Active Substance: EXENATIDE
     Dates: start: 20240607
  2. BYDUREON BCISE [Suspect]
     Active Substance: EXENATIDE
     Dates: start: 20240617

REACTIONS (6)
  - Injection site haemorrhage [Unknown]
  - Multiple use of single-use product [Unknown]
  - Drug dose omission by device [Unknown]
  - Device malfunction [Unknown]
  - Device use issue [Unknown]
  - Wrong technique in device usage process [Unknown]
